FAERS Safety Report 4395394-X (Version None)
Quarter: 2004Q3

REPORT INFORMATION
  Report Type: 
  Country: None (occurrence: None)
  Receive Date: 20040707
  Receipt Date: 20040623
  Transmission Date: 20050211
  Serious: Yes (Hospitalization)
  Sender: FDA-Public Use
  Company Number: EM2004-0232

PATIENT
  Age: 66 Year
  Sex: Male

DRUGS (5)
  1. ALDESLEUKIN; CHIRON (ALDESLEUKIN) INJECTION [Suspect]
     Indication: LUNG NEOPLASM MALIGNANT
     Dosage: 3 MIU, QD,  SUBCUTAN.
     Route: 058
     Dates: start: 20040424, end: 20040424
  2. CISPLATIN [Suspect]
     Indication: LUNG NEOPLASM MALIGNANT
     Dosage: 120 MG, DAY 2 Q 21 DAYS, IV
     Route: 042
     Dates: start: 20040423, end: 20040423
  3. GEMCITABINE (GEMCITABINE) [Suspect]
     Indication: LUNG NEOPLASM MALIGNANT
     Dosage: 1600 MG, DAYS 1 AND 8 Q 21 DAYS, IV
     Route: 042
     Dates: start: 20040422, end: 20040422
  4. DEXAMETHASONE [Concomitant]
  5. SOLUTIONS FOR PARENTERAL NUTRITION [Concomitant]

REACTIONS (2)
  - DISEASE PROGRESSION [None]
  - VOMITING [None]
